FAERS Safety Report 19294307 (Version 1)
Quarter: 2021Q2

REPORT INFORMATION
  Report Type: Spontaneous
  Country: US (occurrence: US)
  Receive Date: 20210524
  Receipt Date: 20210524
  Transmission Date: 20210717
  Serious: No
  Sender: FDA-Public Use
  Company Number: None

PATIENT

DRUGS (1)
  1. TRIAMCINOLONE ACETONIDE OINTMENT USP, 0.1% [Suspect]
     Active Substance: TRIAMCINOLONE ACETONIDE

REACTIONS (3)
  - Dry skin [None]
  - Drug ineffective [None]
  - Erythema [None]

NARRATIVE: CASE EVENT DATE: 20200226
